FAERS Safety Report 6652835-2 (Version None)
Quarter: 2010Q1

REPORT INFORMATION
  Report Type: 
  Country: None (occurrence: None)
  Receive Date: 20100326
  Receipt Date: 20100315
  Transmission Date: 20100710
  Serious: Yes (Hospitalization)
  Sender: FDA-Public Use
  Company Number: ES-ELI_LILLY_AND_COMPANY-ES201002002541

PATIENT
  Sex: Male
  Weight: 70 kg

DRUGS (13)
  1. PEMETREXED [Suspect]
     Indication: NON-SMALL CELL LUNG CANCER
     Dosage: 800 MG, ONCE EVERY THREE WEEKS
     Route: 042
     Dates: start: 20100115
  2. PEMETREXED [Suspect]
     Dosage: 600 MG, ONCE EVERY THREE WEEKS
     Route: 042
  3. AG-013736(AXITINIB) [Suspect]
     Indication: NON-SMALL CELL LUNG CANCER
     Dosage: 5 MG,
     Route: 048
     Dates: start: 20100112, end: 20100126
  4. AG-013736(AXITINIB) [Suspect]
     Dosage: 3 MG, 2/D
     Route: 048
     Dates: start: 20100202
  5. CISPLATIN [Suspect]
     Indication: NON-SMALL CELL LUNG CANCER
     Dosage: 135 MG, ONCE EVERY THREE WEEKS
     Route: 042
     Dates: start: 20100115
  6. CISPLATIN [Suspect]
     Dosage: 100 MG, ONCE EVERY THREE WEEKS
     Route: 042
  7. FRAGMIN [Concomitant]
     Indication: PROPHYLAXIS
     Dates: start: 20100126
  8. OMEPRAZOLE [Concomitant]
     Indication: PROPHYLAXIS
  9. METAMIZOLE [Concomitant]
     Indication: TUMOUR PAIN
     Dates: start: 20090101
  10. ACETYLCYSTEINE [Concomitant]
     Indication: PROPHYLAXIS
     Dates: start: 20100126
  11. GELOCATIL [Concomitant]
     Indication: TUMOUR PAIN
     Dates: start: 20090101
  12. ENALAPRIL MALEATE [Concomitant]
     Indication: HYPERTENSION
     Dates: start: 20080101
  13. SECALIP [Concomitant]
     Indication: DYSLIPIDAEMIA
     Dates: start: 20080101

REACTIONS (1)
  - GASTROINTESTINAL TOXICITY [None]
